FAERS Safety Report 8528424 (Version 2)
Quarter: 2012Q4

REPORT INFORMATION
  Report Type: 
  Country: US (occurrence: US)
  Receive Date: 20120424
  Receipt Date: 20121030
  Transmission Date: 20130627
  Serious: Yes (Other)
  Sender: FDA-Public Use
  Company Number: US-US-EMD SERONO, INC.-7126988

PATIENT
  Age: 49 Year
  Sex: Female

DRUGS (1)
  1. REBIF [Suspect]
     Indication: MULTIPLE SCLEROSIS
     Dates: start: 20111204, end: 201203

REACTIONS (3)
  - Venous insufficiency [Recovered/Resolved]
  - Carotid artery occlusion [Recovered/Resolved]
  - Vascular occlusion [Recovered/Resolved]
